FAERS Safety Report 8867157 (Version 1)
Quarter: 2012Q4

REPORT INFORMATION
  Report Type: 
  Country: US (occurrence: US)
  Receive Date: 20121025
  Receipt Date: 20121025
  Transmission Date: 20130627
  Serious: No
  Sender: FDA-Public Use
  Company Number: US-AMGEN-USASP2012015362

PATIENT
  Age: 57 Year
  Sex: Male
  Weight: 90.7 kg

DRUGS (8)
  1. ENBREL [Suspect]
     Indication: PSORIASIS
     Dosage: 50 mg, 2 times/wk
     Route: 058
  2. LISINOPRIL [Concomitant]
     Dosage: 2.5 mg, UNK
  3. MAGNESIUM OXIDE [Concomitant]
     Dosage: 400 mg, UNK
  4. FERROUS SULPHATE                   /00023503/ [Concomitant]
  5. NEURONTIN [Concomitant]
     Dosage: 300 mg, UNK
  6. OMEGA 3                            /01334101/ [Concomitant]
     Dosage: 1000 mg, UNK
  7. ALLOPURINOL [Concomitant]
     Dosage: 100 mg, UNK
  8. MULTIVITAMIN                       /00097801/ [Concomitant]
     Dosage: UNK

REACTIONS (1)
  - Therapeutic response decreased [Unknown]
